FAERS Safety Report 6925101-5 (Version None)
Quarter: 2010Q3

REPORT INFORMATION
  Report Type: 
  Country: None (occurrence: None)
  Receive Date: 20100810
  Receipt Date: 20100727
  Transmission Date: 20110219
  Serious: Yes (Hospitalization, Other)
  Sender: FDA-Public Use
  Company Number: 2010P1000562

PATIENT
  Age: 23 Year
  Sex: Male

DRUGS (2)
  1. BUPHENYL [Suspect]
     Indication: AMINO ACID METABOLISM DISORDER
     Dosage: 9.9 G; BID; PO
     Route: 048
     Dates: start: 20070101
  2. SEVERAL OTHER MEDICATIONS (UNSPECIFIED) [Concomitant]

REACTIONS (4)
  - ANTICONVULSANT DRUG LEVEL ABNORMAL [None]
  - CONVULSION [None]
  - DRUG TOXICITY [None]
  - JOINT DISLOCATION [None]
